FAERS Safety Report 4523608-1 (Version None)
Quarter: 2004Q4

REPORT INFORMATION
  Report Type: 
  Country: None (occurrence: None)
  Receive Date: 20041210
  Receipt Date: 20041206
  Transmission Date: 20050328
  Serious: Yes (Death, Other)
  Sender: FDA-Public Use
  Company Number: PHBS2004HK16445

PATIENT
  Age: 45 Year
  Sex: Male

DRUGS (7)
  1. CYCLOSPORINE [Suspect]
     Indication: STEM CELL TRANSPLANT
  2. METHOTREXATE [Concomitant]
  3. IMURAN [Concomitant]
  4. STEROIDS NOS [Concomitant]
  5. MELPHALAN [Concomitant]
  6. STEROIDS NOS [Concomitant]
  7. IRRADIATION [Concomitant]

REACTIONS (2)
  - GRAFT VERSUS HOST DISEASE [None]
  - OESOPHAGEAL CARCINOMA [None]
